FAERS Safety Report 7792465-2 (Version None)
Quarter: 2011Q4

REPORT INFORMATION
  Report Type: 
  Country: None (occurrence: None)
  Receive Date: 20111003
  Receipt Date: 20110920
  Transmission Date: 20120403
  Serious: Yes (Hospitalization)
  Sender: FDA-Public Use
  Company Number: US-ELI_LILLY_AND_COMPANY-US201012003743

PATIENT
  Sex: Female

DRUGS (9)
  1. CALCITRIOL [Concomitant]
     Dosage: 25 MG, UNK
  2. FORTEO [Suspect]
     Dosage: 20 UG, DAILY (1/D)
     Route: 058
     Dates: start: 20101213
  3. PLAVIX [Concomitant]
     Dosage: 75 MG, UNK
  4. FAMOTIDINE [Concomitant]
  5. FORTEO [Suspect]
     Indication: OSTEOPOROSIS
     Dosage: 20 UG, DAILY (1/D)
     Route: 058
     Dates: start: 20100805, end: 20101201
  6. LIPITOR [Concomitant]
     Dosage: 20 MG, UNK
  7. LASIX [Concomitant]
     Dosage: 40 MG, UNK
  8. NORVASC [Concomitant]
  9. CEFPROZIL [Concomitant]
     Dosage: 50 MG, UNK

REACTIONS (6)
  - THYROID DISORDER [None]
  - SINUSITIS [None]
  - PAIN [None]
  - KIDNEY INFECTION [None]
  - LUNG DISORDER [None]
  - PNEUMONIA [None]
